FAERS Safety Report 11620364 (Version 1)
Quarter: 2015Q4

REPORT INFORMATION
  Report Type: Spontaneous
  Country: TW (occurrence: TW)
  Receive Date: 20151012
  Receipt Date: 20151012
  Transmission Date: 20160304
  Serious: Yes (Death, Hospitalization)
  Sender: FDA-Public Use
  Company Number: TW-IPCA LABORATORIES LIMITED-IPC201509-000651

PATIENT
  Age: 70 Year
  Sex: Male

DRUGS (2)
  1. WARFARIN [Suspect]
     Active Substance: WARFARIN
     Indication: HEART VALVE REPLACEMENT
  2. AMOXICILLIN/CLAVULANIC ACID [Concomitant]
     Active Substance: AMOXICILLIN\CLAVULANIC ACID
     Indication: PNEUMONIA

REACTIONS (10)
  - Shock [Unknown]
  - Pneumatosis [Unknown]
  - Anaemia [Recovered/Resolved]
  - Renal failure [Fatal]
  - Pancreatitis acute [Unknown]
  - Obstruction gastric [Unknown]
  - Intestinal haematoma [Recovered/Resolved]
  - Respiratory failure [Unknown]
  - Bile duct obstruction [Unknown]
  - Duodenal ulcer haemorrhage [Recovered/Resolved]
